FAERS Safety Report 9659121 (Version 1)
Quarter: 2013Q4

REPORT INFORMATION
  Report Type: Spontaneous
  Country: GB (occurrence: GB)
  Receive Date: 20131031
  Receipt Date: 20131031
  Transmission Date: 20140711
  Serious: Yes (Other)
  Sender: FDA-Public Use
  Company Number: GB-DRREDDYS-USA/UKI/13/0035307

PATIENT
  Age: 14 Year
  Sex: Male

DRUGS (4)
  1. OLANZAPINE [Suspect]
     Indication: BIPOLAR DISORDER
     Dosage: UP TO 10 MG
     Route: 065
  2. RISPERIDONE [Suspect]
     Indication: BIPOLAR DISORDER
     Dosage: UP TO 2 MG
     Route: 065
  3. QUETIAPINE [Suspect]
     Indication: BIPOLAR DISORDER
     Dosage: UP TO 200 MG DAILY
     Route: 065
  4. SODIUM VALPROATE [Concomitant]
     Indication: BIPOLAR DISORDER
     Route: 065

REACTIONS (4)
  - Product substitution issue [Unknown]
  - Drug ineffective [Unknown]
  - Akathisia [Unknown]
  - Product quality issue [Unknown]
